FAERS Safety Report 6204133-9 (Version None)
Quarter: 2009Q2

REPORT INFORMATION
  Report Type: 
  Country: None (occurrence: None)
  Receive Date: 20090521
  Receipt Date: 20090507
  Transmission Date: 20091009
  Serious: No
  Sender: FDA-Public Use
  Company Number: SPI200900164

PATIENT

DRUGS (1)
  1. AMITIZA [Suspect]
     Dosage: 24 MCG, QD, ORAL
     Route: 048

REACTIONS (1)
  - DYSPNOEA [None]
